FAERS Safety Report 7721438-0 (Version None)
Quarter: 2011Q3

REPORT INFORMATION
  Report Type: 
  Country: None (occurrence: None)
  Receive Date: 20110831
  Receipt Date: 20110826
  Transmission Date: 20111222
  Serious: Yes (Death)
  Sender: FDA-Public Use
  Company Number: NL-ROCHE-799111

PATIENT
  Sex: Female

DRUGS (3)
  1. CAPECITABINE [Suspect]
     Indication: COLORECTAL CANCER
     Dosage: LAST DOSE PRIOR TO SAE 4 JANUARY 2008
     Route: 048
     Dates: start: 20071123
  2. OXALIPLATIN [Suspect]
     Indication: COLORECTAL CANCER
     Dosage: LAST DOSE PRIOR TO SAE 4 JANUARY 2008
     Route: 042
     Dates: start: 20071123
  3. AVASTIN [Suspect]
     Indication: COLORECTAL CANCER
     Dosage: LAST DOSE PRIOR TO SAE 14 DECEMBER 2007
     Route: 042
     Dates: start: 20071123

REACTIONS (1)
  - DEATH [None]
